FAERS Safety Report 11294284 (Version 1)
Quarter: 2015Q3

REPORT INFORMATION
  Report Type: Spontaneous
  Country: US (occurrence: US)
  Receive Date: 20150722
  Receipt Date: 20150722
  Transmission Date: 20151125
  Serious: No
  Sender: FDA-Public Use
  Company Number: US-ELI_LILLY_AND_COMPANY-US200803004501

PATIENT
  Age: 83 Year
  Sex: Female
  Weight: 42.18 kg

DRUGS (5)
  1. EVISTA [Suspect]
     Active Substance: RALOXIFENE HYDROCHLORIDE
     Indication: OSTEOPOROSIS
     Dosage: 60 MG, DAILY (1/D)
     Dates: start: 2005
  2. OMEPRAZOLE. [Concomitant]
     Active Substance: OMEPRAZOLE
  3. ZOMETA [Concomitant]
     Active Substance: ZOLEDRONIC ACID
  4. MIRTAZAPINE. [Concomitant]
     Active Substance: MIRTAZAPINE
  5. LEVOXYL [Concomitant]
     Active Substance: LEVOTHYROXINE SODIUM

REACTIONS (1)
  - Intervertebral disc degeneration [Recovered/Resolved]

NARRATIVE: CASE EVENT DATE: 200712
